FAERS Safety Report 9523505 (Version 1)
Quarter: 2013Q3

REPORT INFORMATION
  Report Type: Spontaneous
  Country: US (occurrence: US)
  Receive Date: 20130913
  Receipt Date: 20130913
  Transmission Date: 20140515
  Serious: No
  Sender: FDA-Public Use
  Company Number: US-009507513-1309USA005143

PATIENT
  Age: 57 Year
  Sex: Female

DRUGS (3)
  1. TEMODAR [Suspect]
     Indication: BRAIN NEOPLASM
     Dosage: 2 CAPSULES 5 DAYS A MONTH
     Route: 048
     Dates: start: 201304
  2. COUMADIN [Concomitant]
  3. BACTRIM [Concomitant]

REACTIONS (3)
  - Muscle twitching [Not Recovered/Not Resolved]
  - Drug administration error [Unknown]
  - Product physical issue [Unknown]
